FAERS Safety Report 19150128 (Version 1)
Quarter: 2021Q2

REPORT INFORMATION
  Report Type: Report from Study
  Country: CO (occurrence: CO)
  Receive Date: 20210417
  Receipt Date: 20210417
  Transmission Date: 20210717
  Serious: Yes (Death)
  Sender: FDA-Public Use
  Company Number: NVSC2021CO018622

PATIENT
  Age: 50 Year
  Sex: Male

DRUGS (1)
  1. VOTRIENT [Suspect]
     Active Substance: PAZOPANIB HYDROCHLORIDE
     Indication: SOFT TISSUE SARCOMA
     Dosage: UNK
     Route: 048

REACTIONS (3)
  - Death [Fatal]
  - Dyshidrotic eczema [Unknown]
  - Fungal skin infection [Unknown]

NARRATIVE: CASE EVENT DATE: 20210319
